FAERS Safety Report 18608427 (Version 2)
Quarter: 2021Q3

REPORT INFORMATION
  Report Type: Spontaneous
  Country: US (occurrence: US)
  Receive Date: 20201212
  Receipt Date: 20210719
  Transmission Date: 20211014
  Serious: Yes (Hospitalization)
  Sender: FDA-Public Use
  Company Number: US-009507513-2012USA003559

PATIENT
  Age: 51 Year
  Sex: Female

DRUGS (11)
  1. PRINIVIL [Suspect]
     Active Substance: LISINOPRIL
     Dosage: 40 MG/ONCE DAILY
     Route: 048
  2. ATORVASTATIN CALCIUM. [Suspect]
     Active Substance: ATORVASTATIN CALCIUM
     Dosage: 40 MG
  3. SYNTHROID [Concomitant]
     Active Substance: LEVOTHYROXINE SODIUM
  4. ACETYLSALICYLIC ACID [Concomitant]
     Active Substance: ASPIRIN
  5. PRINIVIL [Suspect]
     Active Substance: LISINOPRIL
     Indication: HYPERTENSION
     Dosage: 20 MG/TWICE DAILY
     Route: 048
     Dates: start: 200012
  6. AMLODIPINE [Suspect]
     Active Substance: AMLODIPINE BESYLATE
     Dosage: 5 MG
  7. HYDROCHLOROTHIAZIDE. [Suspect]
     Active Substance: HYDROCHLOROTHIAZIDE
     Dosage: 20 MG/ TWICE DAILY
  8. LATANOPROST. [Concomitant]
     Active Substance: LATANOPROST
  9. NORVASC [Suspect]
     Active Substance: AMLODIPINE BESYLATE
     Dosage: 10 MG
  10. ZESTRIL [Suspect]
     Active Substance: LISINOPRIL
     Indication: BLOOD PRESSURE ABNORMAL
     Dosage: UNK
     Dates: start: 2021
  11. ENALAPRIL [Suspect]
     Active Substance: ENALAPRIL
     Dosage: 20 MG/ TWICE DAILY

REACTIONS (23)
  - Tremor [Unknown]
  - Abdominal distension [Unknown]
  - Balance disorder [Unknown]
  - Anxiety [Unknown]
  - Fatigue [Unknown]
  - Dehydration [Unknown]
  - Ophthalmic migraine [Unknown]
  - Blood pressure abnormal [Unknown]
  - Frequent bowel movements [Unknown]
  - Confusional state [Unknown]
  - Inappropriate schedule of product administration [Unknown]
  - Pruritus [Unknown]
  - Dizziness [Unknown]
  - Haemorrhoids [Unknown]
  - Neck pain [Unknown]
  - Vision blurred [Unknown]
  - Drug ineffective [Recovered/Resolved]
  - Decreased appetite [Unknown]
  - Pain in extremity [Unknown]
  - Pollakiuria [Unknown]
  - Feeling cold [Unknown]
  - Muscle spasms [Unknown]
  - Urticaria [Unknown]

NARRATIVE: CASE EVENT DATE: 200012
